FAERS Safety Report 9663048 (Version 3)
Quarter: 2014Q2

REPORT INFORMATION
  Report Type: Report from Study
  Country: GB (occurrence: GB)
  Receive Date: 20131031
  Receipt Date: 20140416
  Transmission Date: 20141212
  Serious: Yes (Other)
  Sender: FDA-Public Use
  Company Number: GB-009507513-1208GBR009939

PATIENT
  Age: 75 Year
  Sex: Male
  Weight: 76 kg

DRUGS (3)
  1. SIMVASTATIN [Suspect]
     Indication: ACUTE CORONARY SYNDROME
     Dosage: 40 MG, QD
     Route: 048
     Dates: start: 20071130
  2. TAMSULOSIN HYDROCHLORIDE [Concomitant]
     Dosage: 400 MICROGRAM, QD
     Route: 048
     Dates: start: 20100916
  3. LANZOPRAZOL [Concomitant]
     Dosage: 20 MG, QD
     Route: 048
     Dates: start: 20110401

REACTIONS (1)
  - Prostate cancer [Recovered/Resolved]
